FAERS Safety Report 7941765-1 (Version None)
Quarter: 2011Q4

REPORT INFORMATION
  Report Type: 
  Country: None (occurrence: None)
  Receive Date: 20111122
  Receipt Date: 20111122
  Transmission Date: 20120403
  Serious: No
  Sender: FDA-Public Use
  Company Number: None

PATIENT
  Age: 68 Year
  Sex: Male
  Weight: 109.2 kg

DRUGS (1)
  1. AMIODARONE HCL [Suspect]
     Indication: ATRIAL FIBRILLATION
     Dosage: 200 MG BID PO
     Route: 048
     Dates: start: 20110815, end: 20110906

REACTIONS (3)
  - TOXICITY TO VARIOUS AGENTS [None]
  - ALVEOLITIS ALLERGIC [None]
  - DRUG HYPERSENSITIVITY [None]
